FAERS Safety Report 4867758-9 (Version None)
Quarter: 2005Q4

REPORT INFORMATION
  Report Type: 
  Country: None (occurrence: None)
  Receive Date: 20051227
  Receipt Date: 20051227
  Transmission Date: 20060501
  Serious: Yes (Life-Threatening, Hospitalization, Disabling, Other)
  Sender: FDA-Public Use
  Company Number: None

PATIENT
  Sex: Female
  Weight: 79.3795 kg

DRUGS (2)
  1. ORTHO EVRA [Suspect]
     Indication: CONTRACEPTION
     Dosage: 1 PATCH 1 PATCH /WK TRANSDERMAL
     Route: 062
     Dates: start: 20031215, end: 20041209
  2. ORTHO EVRA [Suspect]
     Indication: MENSTRUATION IRREGULAR
     Dosage: 1 PATCH 1 PATCH /WK TRANSDERMAL
     Route: 062
     Dates: start: 20031215, end: 20041209

REACTIONS (7)
  - BRAIN OEDEMA [None]
  - CEREBRAL HAEMORRHAGE [None]
  - HAEMORRHAGIC STROKE [None]
  - INJURY [None]
  - INTRACRANIAL VENOUS SINUS THROMBOSIS [None]
  - NERVOUS SYSTEM DISORDER [None]
  - VISUAL FIELD DEFECT [None]
